FAERS Safety Report 20000351 (Version 1)
Quarter: 2021Q4

REPORT INFORMATION
  Report Type: Spontaneous
  Country: KR (occurrence: KR)
  Receive Date: 20211026
  Receipt Date: 20211026
  Transmission Date: 20220303
  Serious: Yes (Hospitalization, Other)
  Sender: FDA-Public Use
  Company Number: KR-KYOWAKIRIN-2021AKK017817

PATIENT
  Age: 58 Year
  Sex: Female

DRUGS (8)
  1. FILGRASTIM [Suspect]
     Active Substance: FILGRASTIM
     Indication: Product used for unknown indication
     Dosage: UNK
     Route: 042
     Dates: start: 20140802, end: 20140803
  2. ERIBULIN [Suspect]
     Active Substance: ERIBULIN
     Indication: Product used for unknown indication
     Dosage: 2.3 MG
     Route: 042
     Dates: start: 20140726, end: 20140726
  3. FENTANYL [Concomitant]
     Active Substance: FENTANYL
     Indication: Product used for unknown indication
     Dosage: UNK
     Route: 065
     Dates: start: 20140726
  4. GLUTATHIONE [Concomitant]
     Active Substance: GLUTATHIONE
     Indication: Product used for unknown indication
     Dosage: 100 MG
     Route: 048
     Dates: start: 20140801, end: 20140802
  5. MEGESTROL [Concomitant]
     Active Substance: MEGESTROL
     Indication: Product used for unknown indication
     Dosage: 625 MG
     Route: 048
     Dates: start: 20140805, end: 20140821
  6. METFORMIN\VILDAGLIPTIN [Concomitant]
     Active Substance: METFORMIN\VILDAGLIPTIN
     Indication: Product used for unknown indication
     Dosage: 50 MG
     Route: 048
     Dates: start: 20140726
  7. NALOXONE HYDROCHLORIDE\OXYCODONE HYDROCHLORIDE [Concomitant]
     Active Substance: NALOXONE HYDROCHLORIDE\OXYCODONE HYDROCHLORIDE
     Indication: Product used for unknown indication
     Dosage: UNK
     Route: 048
     Dates: start: 20140726
  8. ZOLEDRONIC ACID [Concomitant]
     Active Substance: ZOLEDRONIC ACID
     Indication: Product used for unknown indication
     Dosage: 4 MG
     Route: 042
     Dates: start: 20140726, end: 20140726

REACTIONS (3)
  - Pleural effusion [Recovered/Resolved]
  - Neutropenia [Recovered/Resolved]
  - Cauda equina syndrome [Not Recovered/Not Resolved]

NARRATIVE: CASE EVENT DATE: 20140801
